FAERS Safety Report 22202417 (Version 1)
Quarter: 2023Q2

REPORT INFORMATION
  Report Type: Spontaneous
  Country: US (occurrence: US)
  Receive Date: 20230412
  Receipt Date: 20230412
  Transmission Date: 20230722
  Serious: Yes (Hospitalization)
  Sender: FDA-Public Use
  Company Number: US-PFIZER INC-202300149445

PATIENT
  Age: 76 Year
  Sex: Male

DRUGS (1)
  1. INLYTA [Suspect]
     Active Substance: AXITINIB
     Indication: Renal cell carcinoma
     Dosage: 1 MG, 3X/DAY (TAKE 1 TABLET IN THE MORNING AND 2 TABLETS IN THE EVENING)
     Route: 048
     Dates: start: 20220502

REACTIONS (3)
  - Jaundice [Unknown]
  - Liver disorder [Unknown]
  - Off label use [Unknown]
